FAERS Safety Report 13450016 (Version 1)
Quarter: 2017Q2

REPORT INFORMATION
  Report Type: Spontaneous
  Country: US (occurrence: US)
  Receive Date: 20170417
  Receipt Date: 20170417
  Transmission Date: 20170830
  Serious: No
  Sender: FDA-Public Use
  Company Number: US-BION-20160502

PATIENT
  Age: 45 Year
  Sex: Male

DRUGS (1)
  1. ALEVE [Suspect]
     Active Substance: NAPROXEN SODIUM
     Indication: HEADACHE
     Dosage: 3 DF QD
     Route: 048
     Dates: end: 20160906

REACTIONS (3)
  - Incorrect dosage administered [Unknown]
  - Drug effect incomplete [Unknown]
  - Incorrect drug administration duration [Unknown]
